FAERS Safety Report 6531807-2 (Version None)
Quarter: 2010Q1

REPORT INFORMATION
  Report Type: 
  Country: None (occurrence: None)
  Receive Date: 20100108
  Receipt Date: 20100104
  Transmission Date: 20100710
  Serious: Yes (Death)
  Sender: FDA-Public Use
  Company Number: D0063499A

PATIENT
  Sex: Female
  Weight: 120 kg

DRUGS (7)
  1. ARIXTRA [Suspect]
     Indication: THROMBOCYTOPENIA
     Route: 065
     Dates: start: 20091026, end: 20091030
  2. HEPARIN [Concomitant]
     Route: 065
  3. VITAMIN K ANTAGONIST [Concomitant]
     Route: 065
  4. PIPERACILLIN [Concomitant]
     Route: 065
     Dates: end: 20091103
  5. COMBACTAM [Concomitant]
     Route: 065
     Dates: end: 20091103
  6. DIURETIC [Concomitant]
     Route: 065
  7. CATECHOLAMINE [Concomitant]
     Route: 065

REACTIONS (9)
  - ANAEMIA [None]
  - BRONCHIAL HAEMORRHAGE [None]
  - CANDIDURIA [None]
  - ENTEROCOCCAL INFECTION [None]
  - GASTROINTESTINAL HAEMORRHAGE [None]
  - MULTI-ORGAN FAILURE [None]
  - OVERDOSE [None]
  - PULMONARY OEDEMA [None]
  - SEPSIS [None]
